FAERS Safety Report 12677460 (Version 2)
Quarter: 2016Q3

REPORT INFORMATION
  Report Type: Report from Study
  Country: BR (occurrence: BR)
  Receive Date: 20160823
  Receipt Date: 20160908
  Transmission Date: 20161109
  Serious: Yes (Hospitalization, Other)
  Sender: FDA-Public Use
  Company Number: PHHY2016BR115004

PATIENT
  Age: 61 Year
  Sex: Female
  Weight: 79 kg

DRUGS (5)
  1. FORASEQ [Suspect]
     Active Substance: BUDESONIDE\FORMOTEROL FUMARATE
     Dosage: UNK UNK, Q12H
     Route: 048
     Dates: start: 2006
  2. FORASEQ [Suspect]
     Active Substance: BUDESONIDE\FORMOTEROL FUMARATE
     Indication: ASTHMA
     Dosage: 400 UG, Q12H (EVERY 12 HOURS)
     Route: 055
  3. SPIRIVA [Concomitant]
     Active Substance: TIOTROPIUM BROMIDE MONOHYDRATE
     Indication: ASTHMA
     Dosage: QD
     Route: 055
  4. ALENIA                             /01538101/ [Concomitant]
     Active Substance: BUDESONIDE\FORMOTEROL FUMARATE
     Indication: ASTHMA
     Dosage: 400 MG, Q12H
     Route: 055
  5. METICORTEN [Concomitant]
     Active Substance: PREDNISONE
     Indication: PRODUCT USED FOR UNKNOWN INDICATION
     Route: 065

REACTIONS (11)
  - Asthma [Unknown]
  - Malaise [Unknown]
  - Asthmatic crisis [Recovering/Resolving]
  - Respiratory fatigue [Not Recovered/Not Resolved]
  - Sinusitis [Recovered/Resolved]
  - Swelling [Unknown]
  - Hypersensitivity [Recovered/Resolved]
  - Pneumonia [Recovered/Resolved]
  - Poor quality sleep [Unknown]
  - Wheezing [Recovering/Resolving]
  - Apnoea [Recovered/Resolved]

NARRATIVE: CASE EVENT DATE: 20160815
